FAERS Safety Report 7350579-5 (Version None)
Quarter: 2011Q1

REPORT INFORMATION
  Report Type: 
  Country: None (occurrence: None)
  Receive Date: 20110314
  Receipt Date: 20110301
  Transmission Date: 20110831
  Serious: Yes (Hospitalization, Disabling)
  Sender: FDA-Public Use
  Company Number: US-MERCK-1011USA02599

PATIENT
  Age: 67 Year
  Sex: Female

DRUGS (1)
  1. FOSAMAX [Suspect]
     Indication: OSTEOPOROSIS
     Route: 048
     Dates: start: 20020901, end: 20081101

REACTIONS (9)
  - STRESS FRACTURE [None]
  - TOOTH EXTRACTION [None]
  - FEMUR FRACTURE [None]
  - PULMONARY EMBOLISM [None]
  - URETHRAL DISORDER [None]
  - OSTEOPOROSIS [None]
  - BREAST CANCER [None]
  - DENTAL CARIES [None]
  - LOW TURNOVER OSTEOPATHY [None]
